FAERS Safety Report 6553491-4 (Version None)
Quarter: 2010Q1

REPORT INFORMATION
  Report Type: 
  Country: None (occurrence: None)
  Receive Date: 20100122
  Receipt Date: 20100106
  Transmission Date: 20100710
  Serious: Yes (Death)
  Sender: FDA-Public Use
  Company Number: 2009AC000009

PATIENT
  Age: 49 Year
  Sex: Male

DRUGS (20)
  1. DIGOXIN [Suspect]
     Dosage: 0.25 MG; PO
     Dates: start: 20010801
  2. PLAVIX [Concomitant]
  3. DIAZEPAM [Concomitant]
  4. CLINDAMYCIN [Concomitant]
  5. OXYCODONE HCL [Concomitant]
  6. HYDROCODONE [Concomitant]
  7. AMBIEN [Concomitant]
  8. ZYBAN [Concomitant]
  9. ZOCOR [Concomitant]
  10. ALTACE [Concomitant]
  11. NIFEDICAL [Concomitant]
  12. ATENOLOL [Concomitant]
  13. ZESTORETIC [Concomitant]
  14. NITROSTAT [Concomitant]
  15. VIAGRA [Concomitant]
  16. VALTREX [Concomitant]
  17. FUROSEMIDE [Concomitant]
  18. SIMVASTATIN [Concomitant]
  19. CIALIS [Concomitant]
  20. RAMIPRIL [Concomitant]

REACTIONS (2)
  - ECONOMIC PROBLEM [None]
  - MULTIPLE INJURIES [None]
